FAERS Safety Report 9311237 (Version 1)
Quarter: 2013Q2

REPORT INFORMATION
  Report Type: Spontaneous
  Country: US (occurrence: US)
  Receive Date: 20130528
  Receipt Date: 20130528
  Transmission Date: 20140414
  Serious: Yes (Other)
  Sender: FDA-Public Use
  Company Number: US-SANOFI-AVENTIS-2013SA052690

PATIENT
  Age: 63 Year
  Sex: Female

DRUGS (2)
  1. LANTUS SOLOSTAR [Suspect]
     Indication: DIABETES MELLITUS
     Dosage: THERAPY START DATE - 2 YEARS DOSE:45 UNIT(S)
     Route: 051
  2. SOLOSTAR [Suspect]
     Indication: DIABETES MELLITUS
     Dosage: THERAPY START DATE - 2 YEARS

REACTIONS (2)
  - Upper limb fracture [Unknown]
  - Expired drug administered [Unknown]
